FAERS Safety Report 16845440 (Version 1)
Quarter: 2019Q3

REPORT INFORMATION
  Report Type: Spontaneous
  Country: US (occurrence: US)
  Receive Date: 20190802
  Receipt Date: 20190802
  Transmission Date: 20191005
  Serious: Yes (Hospitalization)
  Sender: FDA-Public Use
  Company Number: None

PATIENT
  Age: 17 Year
  Sex: Female

DRUGS (1)
  1. TETRABENAZINE 12.5MG [Suspect]
     Active Substance: TETRABENAZINE

REACTIONS (2)
  - Leukaemia [None]
  - Therapy cessation [None]

NARRATIVE: CASE EVENT DATE: 20190724
